FAERS Safety Report 21947281 (Version 2)
Quarter: 2023Q1

REPORT INFORMATION
  Report Type: Spontaneous
  Country: US (occurrence: None)
  Receive Date: 20230202
  Receipt Date: 20230309
  Transmission Date: 20230418
  Serious: No
  Sender: FDA-Public Use
  Company Number: 2023A018253

PATIENT
  Sex: Female

DRUGS (2)
  1. BUDESONIDE\FORMOTEROL\GLYCOPYRRONIUM [Suspect]
     Active Substance: BUDESONIDE\FORMOTEROL\GLYCOPYRRONIUM
     Indication: Asthma
     Dosage: 160/9/4.8MCG160UG/MG TWO TIMES A DAY
     Route: 055
     Dates: start: 202206
  2. SYMBICORT [Suspect]
     Active Substance: BUDESONIDE\FORMOTEROL FUMARATE DIHYDRATE
     Indication: Asthma
     Dosage: 160/4,5MCG160UG/MG TWO TIMES A DAY
     Route: 055

REACTIONS (3)
  - Nervousness [Unknown]
  - Device malfunction [Unknown]
  - Wrong technique in device usage process [Unknown]
